FAERS Safety Report 14170282 (Version 1)
Quarter: 2017Q4

REPORT INFORMATION
  Report Type: Spontaneous
  Country: US (occurrence: US)
  Receive Date: 20171108
  Receipt Date: 20171108
  Transmission Date: 20180321
  Serious: No
  Sender: FDA-Public Use
  Company Number: US-009507513-1711USA002532

PATIENT
  Age: 21 Year
  Sex: Female
  Weight: 63.95 kg

DRUGS (7)
  1. NEXPLANON [Suspect]
     Active Substance: ETONOGESTREL
     Indication: CONTRACEPTION
     Dosage: 68 MG, SUBDERMAL IMPLANT, LEFT ARM
     Route: 059
     Dates: start: 20170216, end: 20170314
  2. FLONASE [Concomitant]
     Active Substance: FLUTICASONE PROPIONATE
     Indication: HYPERSENSITIVITY
     Dosage: 50 MCG/SPRAY (TOTAL DAILY DOSE: 100 MCG)
     Route: 048
     Dates: start: 20161117
  3. VISTARIL [Concomitant]
     Active Substance: HYDROXYZINE PAMOATE
     Indication: ANXIETY
     Dosage: 25 MG, UNK  (TOTAL DAILY DOSE: 75 MG)
     Route: 048
     Dates: start: 20161011, end: 20170629
  4. ZOLOFT [Concomitant]
     Active Substance: SERTRALINE HYDROCHLORIDE
     Indication: ANXIETY
     Dosage: 50 MG, QD
     Route: 048
     Dates: start: 20161011, end: 20170629
  5. NEXPLANON [Suspect]
     Active Substance: ETONOGESTREL
     Dosage: UNK
     Route: 059
     Dates: start: 20170327, end: 20170831
  6. ZYRTEC [Concomitant]
     Active Substance: CETIRIZINE HYDROCHLORIDE
     Indication: HYPERSENSITIVITY
     Dosage: 10 MG, QD
     Route: 048
     Dates: start: 20141130
  7. OMEPRAZOLE. [Concomitant]
     Active Substance: OMEPRAZOLE
     Indication: GASTROOESOPHAGEAL REFLUX DISEASE
     Dosage: 20 MG, QD
     Route: 048
     Dates: start: 20160606

REACTIONS (6)
  - Implant site pain [Unknown]
  - Device kink [Recovered/Resolved]
  - Headache [Unknown]
  - Polymenorrhoea [Unknown]
  - Device breakage [Recovered/Resolved]
  - Discomfort [Unknown]

NARRATIVE: CASE EVENT DATE: 2017
